FAERS Safety Report 25939860 (Version 1)
Quarter: 2025Q4

REPORT INFORMATION
  Report Type: Spontaneous
  Country: US (occurrence: US)
  Receive Date: 20251020
  Receipt Date: 20251020
  Transmission Date: 20260117
  Serious: No
  Sender: Kenvue
  Company Number: US-KENVUE-20250912445

PATIENT
  Age: 61 Year
  Sex: Male

DRUGS (1)
  1. MENS ROGAINE [Suspect]
     Active Substance: MINOXIDIL
     Indication: Alopecia
     Dosage: 1 MILLILITER, TWICE A DAY
     Route: 061
     Dates: start: 20250423, end: 2025

REACTIONS (3)
  - Application site hypersensitivity [Recovering/Resolving]
  - Application site exfoliation [Recovering/Resolving]
  - Application site haemorrhage [Recovering/Resolving]

NARRATIVE: CASE EVENT DATE: 20250424
